FAERS Safety Report 4766970-7 (Version None)
Quarter: 2005Q3

REPORT INFORMATION
  Report Type: 
  Country: None (occurrence: None)
  Receive Date: 20050908
  Receipt Date: 20050826
  Transmission Date: 20060218
  Serious: Yes (Death)
  Sender: FDA-Public Use
  Company Number: 2005JP001599

PATIENT

DRUGS (2)
  1. PROGRAF [Suspect]
     Indication: LIVER TRANSPLANT
  2. STEROID [Concomitant]

REACTIONS (2)
  - HEPATITIS INFECTIOUS MONONUCLEOSIS [None]
  - INFECTION IN AN IMMUNOCOMPROMISED HOST [None]
